FAERS Safety Report 9969056 (Version 2)
Quarter: 2014Q2

REPORT INFORMATION
  Report Type: Spontaneous
  Country: US (occurrence: US)
  Receive Date: 20140306
  Receipt Date: 20140417
  Transmission Date: 20141212
  Serious: Yes (Life-Threatening, Hospitalization)
  Sender: FDA-Public Use
  Company Number: US-ROCHE-1357499

PATIENT
  Sex: Female
  Weight: 89.89 kg

DRUGS (10)
  1. TAMIFLU [Suspect]
     Indication: INFLUENZA
     Route: 048
     Dates: start: 20140106, end: 20140108
  2. BACTRIM [Suspect]
     Indication: SKIN INFECTION
     Dosage: 1 DOSE
     Route: 048
     Dates: start: 20140102
  3. PHENERGAN SUPPOSITORY [Suspect]
     Indication: NAUSEA
     Route: 054
     Dates: start: 20140107, end: 20140108
  4. PHENERGAN SUPPOSITORY [Suspect]
     Indication: VOMITING
  5. INVOKANA [Suspect]
     Indication: TYPE 2 DIABETES MELLITUS
     Route: 048
     Dates: start: 201312, end: 20140105
  6. INVOKANA [Suspect]
     Route: 048
     Dates: start: 201312, end: 20140105
  7. CRESTOR [Concomitant]
     Indication: BLOOD CHOLESTEROL INCREASED
     Route: 065
  8. JANUMET [Concomitant]
     Indication: DIABETES MELLITUS
     Route: 065
  9. LISINOPRIL [Concomitant]
     Indication: HYPERTENSION
     Route: 048
  10. SULFAMETHOXAZOLE [Concomitant]

REACTIONS (10)
  - Renal failure acute [Recovered/Resolved]
  - Septic shock [Recovered/Resolved]
  - Hypersensitivity [Recovered/Resolved]
  - Rash generalised [Recovering/Resolving]
  - Fungal infection [Recovering/Resolving]
  - Body tinea [Recovering/Resolving]
  - Influenza like illness [Recovering/Resolving]
  - Vulvovaginal mycotic infection [Recovering/Resolving]
  - Weight decreased [Unknown]
  - Oral candidiasis [Unknown]
